FAERS Safety Report 7681731-7 (Version None)
Quarter: 2011Q3

REPORT INFORMATION
  Report Type: 
  Country: None (occurrence: None)
  Receive Date: 20110812
  Receipt Date: 20110729
  Transmission Date: 20111222
  Serious: Yes (Hospitalization)
  Sender: FDA-Public Use
  Company Number: DE-WATSON-2011-12602

PATIENT
  Age: 2 Year
  Sex: Female

DRUGS (3)
  1. TACROLIMUS [Suspect]
     Indication: HEART TRANSPLANT
     Dosage: UNK
     Dates: start: 20080501
  2. AMIODARONE HCL [Suspect]
     Indication: VENTRICULAR ARRHYTHMIA
     Dosage: UNK
  3. SIROLIMUS [Suspect]
     Indication: HEART TRANSPLANT

REACTIONS (2)
  - DRUG INTERACTION [None]
  - DRUG LEVEL INCREASED [None]
